FAERS Safety Report 5806931-X (Version None)
Quarter: 2008Q3

REPORT INFORMATION
  Report Type: 
  Country: None (occurrence: None)
  Receive Date: 20080711
  Receipt Date: 20080703
  Transmission Date: 20090109
  Serious: Yes (Hospitalization)
  Sender: FDA-Public Use
  Company Number: GB-JNJFOC-20080701615

PATIENT
  Age: 58 Year
  Sex: Female

DRUGS (10)
  1. RISPERIDONE [Suspect]
     Indication: BIPOLAR DISORDER
     Route: 048
  2. VALPROATE SODIUM [Suspect]
     Indication: BIPOLAR DISORDER
     Route: 048
  3. VENALFAXINE [Suspect]
     Indication: BIPOLAR DISORDER
     Route: 048
  4. AMLODIPINE [Concomitant]
     Route: 048
  5. FOLIC ACID [Concomitant]
     Route: 048
  6. OMEPRAZOLE [Concomitant]
     Route: 048
  7. PREGABALIN [Concomitant]
     Route: 048
  8. ALBUTEROL [Concomitant]
     Route: 055
  9. THIAMINE [Concomitant]
     Route: 048
  10. ZOPICLONE [Concomitant]
     Route: 048

REACTIONS (1)
  - HYPONATRAEMIA [None]
